FAERS Safety Report 13341976 (Version 1)
Quarter: 2017Q1

REPORT INFORMATION
  Report Type: Spontaneous
  Country: None (occurrence: US)
  Receive Date: 20170316
  Receipt Date: 20170316
  Transmission Date: 20170428
  Serious: Yes (Life-Threatening, Other)
  Sender: FDA-Public Use
  Company Number: None

PATIENT
  Age: 76 Year
  Sex: Female
  Weight: 104.42 kg

DRUGS (2)
  1. UPTRAVI [Suspect]
     Active Substance: SELEXIPAG
     Indication: PULMONARY ARTERIAL HYPERTENSION
     Route: 048
     Dates: start: 20160818, end: 20161113
  2. SELEXIPAG 1600 MCG BID [Suspect]
     Active Substance: SELEXIPAG

REACTIONS (4)
  - Headache [None]
  - Dyspnoea [None]
  - Asthenia [None]
  - Oxygen saturation decreased [None]

NARRATIVE: CASE EVENT DATE: 20160818
